FAERS Safety Report 5849659-2 (Version None)
Quarter: 2008Q3

REPORT INFORMATION
  Report Type: 
  Country: None (occurrence: None)
  Receive Date: 20080818
  Receipt Date: 20080818
  Transmission Date: 20090109
  Serious: No
  Sender: FDA-Public Use
  Company Number: None

PATIENT
  Age: 36 Year
  Sex: Female
  Weight: 59.4212 kg

DRUGS (1)
  1. KENALOG [Suspect]
     Indication: DERMATITIS CONTACT
     Dosage: TWO DOSES IN GLUTE; 2 TIMES PILL FORM OF STEROID
     Dates: start: 20070915, end: 20070930

REACTIONS (5)
  - ARTHRALGIA [None]
  - BURSITIS [None]
  - MUSCLE INJURY [None]
  - MUSCULOSKELETAL STIFFNESS [None]
  - SPINAL DISORDER [None]
